FAERS Safety Report 16289913 (Version 2)
Quarter: 2019Q2

REPORT INFORMATION
  Report Type: Report from Study
  Country: NL (occurrence: NL)
  Receive Date: 20190509
  Receipt Date: 20190528
  Transmission Date: 20190711
  Serious: Yes (Hospitalization, Other)
  Sender: FDA-Public Use
  Company Number: PHHY2019NL104773

PATIENT
  Age: 67 Year
  Sex: Female
  Weight: 79 kg

DRUGS (28)
  1. PACLITAXEL. [Concomitant]
     Active Substance: PACLITAXEL
     Indication: PRODUCT USED FOR UNKNOWN INDICATION
     Dosage: (WEEKLY)
     Route: 065
     Dates: start: 20181004
  2. ZOMETA [Suspect]
     Active Substance: ZOLEDRONIC ACID
     Indication: BREAST CANCER METASTATIC
     Dosage: 1 DF (4 MG / 100 ML), QW4
     Route: 042
  3. PANTOPRAZOLE [Concomitant]
     Active Substance: PANTOPRAZOLE
     Indication: GASTRITIS
     Dosage: 40 MG, BID
     Route: 048
  4. CALCIUM CARBONATE. [Concomitant]
     Active Substance: CALCIUM CARBONATE
     Indication: PRODUCT USED FOR UNKNOWN INDICATION
     Dosage: 1.25 G/800 IU (500 MG CA), QD
     Route: 048
  5. DEXAMETHASONE. [Concomitant]
     Active Substance: DEXAMETHASONE
     Dosage: 4 MG, (1 X PER DAY 0.5 PIECE)
     Route: 048
  6. SALBUTAMOL [Concomitant]
     Active Substance: ALBUTEROL
     Indication: PRODUCT USED FOR UNKNOWN INDICATION
     Dosage: 1/0.2 MG/ML (WHEN NECESSARY 4 X PER DAY 1 PIECE) (NEBULIZER SOLUTION)
     Route: 055
  7. GLICLAZIDE [Concomitant]
     Active Substance: GLICLAZIDE
     Indication: PRODUCT USED FOR UNKNOWN INDICATION
     Dosage: 30 MG, QD
     Route: 048
  8. ZOMETA [Suspect]
     Active Substance: ZOLEDRONIC ACID
     Dosage: 4 MG, UNK
     Route: 058
     Dates: start: 2018
  9. DUROGESIC [Concomitant]
     Active Substance: FENTANYL
     Indication: PRODUCT USED FOR UNKNOWN INDICATION
     Dosage: 50 UG/HOUR (1X PER 3 DAYS 1 PIECE)
     Route: 062
  10. IPRATROPIUM [Concomitant]
     Active Substance: IPRATROPIUM
     Indication: PRODUCT USED FOR UNKNOWN INDICATION
     Dosage: 1/0.2 MG/ML (WHEN NECESSARY 4 X PER DAY 1 PIECE) (NEBULIZER SOLUTION)
     Route: 055
  11. AMITRIPTYLINE HYDROCHLORIDE. [Concomitant]
     Active Substance: AMITRIPTYLINE HYDROCHLORIDE
     Indication: PRODUCT USED FOR UNKNOWN INDICATION
     Dosage: 25 MG, QD
     Route: 048
  12. APREPITANT. [Concomitant]
     Active Substance: APREPITANT
     Indication: PRODUCT USED FOR UNKNOWN INDICATION
     Dosage: 125+80 MG (COMBINATION PACKAGING) (1 X PER DAY 1 PIECE)
     Route: 048
  13. HYDROCHLOROTHIAZIDE. [Concomitant]
     Active Substance: HYDROCHLOROTHIAZIDE
     Indication: PRODUCT USED FOR UNKNOWN INDICATION
     Dosage: 12.5 MG, QD
     Route: 048
  14. PARACETAMOL [Concomitant]
     Active Substance: ACETAMINOPHEN
     Indication: PRODUCT USED FOR UNKNOWN INDICATION
     Dosage: 500 MG, QID (2 PIECE WHEN NECESSARY)
     Route: 048
  15. FENTANYL. [Concomitant]
     Active Substance: FENTANYL
     Indication: PRODUCT USED FOR UNKNOWN INDICATION
     Dosage: 100 UG, (WHEN NECESSARY 6 X PER DAY) (2; 2; 1; 1; 1; 1 PIECE)
     Route: 060
  16. EDOXABAN [Concomitant]
     Active Substance: EDOXABAN TOSYLATE
     Indication: PRODUCT USED FOR UNKNOWN INDICATION
     Dosage: 60 MG, QD
     Route: 048
  17. TAMOXIFEN [Concomitant]
     Active Substance: TAMOXIFEN
     Indication: BIOPSY
     Route: 065
  18. ZOMETA [Suspect]
     Active Substance: ZOLEDRONIC ACID
     Dosage: 1 DF (4 MG / 100 ML), QW4
     Route: 042
     Dates: start: 20180719
  19. IVABRADINE [Concomitant]
     Active Substance: IVABRADINE
     Indication: PRODUCT USED FOR UNKNOWN INDICATION
     Dosage: 5 MG, QD
     Route: 048
  20. DEXAMETHASONE. [Concomitant]
     Active Substance: DEXAMETHASONE
     Indication: PRODUCT USED FOR UNKNOWN INDICATION
     Dosage: 8 MG, UNK
     Route: 048
  21. ZOLEDRONIC ACID [Concomitant]
     Active Substance: ZOLEDRONIC ACID
     Indication: PRODUCT USED FOR UNKNOWN INDICATION
     Dosage: 0.8 MG/ML, QMO (BOTTLE 5 ML)
     Route: 042
  22. NITROGLICERINA [Concomitant]
     Active Substance: NITROGLYCERIN
     Indication: PRODUCT USED FOR UNKNOWN INDICATION
     Dosage: 0.4 MG, (WHEN NECESSARY 1 X PER DAY 1 PIECE)
     Route: 060
  23. MACROGOL [Concomitant]
     Active Substance: POLYETHYLENE GLYCOLS
     Indication: PRODUCT USED FOR UNKNOWN INDICATION
     Dosage: 1 DF, QD
     Route: 048
  24. CHOLECALCIFEROL [Concomitant]
     Active Substance: CHOLECALCIFEROL
     Indication: PRODUCT USED FOR UNKNOWN INDICATION
     Dosage: 1.25 G/800 IU (500 MG CA), QD
     Route: 048
  25. DUROGESIC [Concomitant]
     Active Substance: FENTANYL
     Dosage: 100 UG/HOUR (1X PER 3 DAYS 1 PIECE)
     Route: 062
  26. OXAZEPAM. [Concomitant]
     Active Substance: OXAZEPAM
     Indication: PRODUCT USED FOR UNKNOWN INDICATION
     Dosage: 10 MG, (WHEN NECESSARY 1 X PER DAY 0.5 TO 1 PIECE)
     Route: 048
  27. TEMAZEPAM. [Concomitant]
     Active Substance: TEMAZEPAM
     Indication: PRODUCT USED FOR UNKNOWN INDICATION
     Dosage: 20 MG, QD
     Route: 048
  28. ATENOLOL. [Concomitant]
     Active Substance: ATENOLOL
     Indication: PRODUCT USED FOR UNKNOWN INDICATION
     Dosage: 100 MG, QD
     Route: 048

REACTIONS (17)
  - Headache [Unknown]
  - Weight increased [Unknown]
  - Wheezing [Unknown]
  - Pyrexia [Unknown]
  - Fatigue [Unknown]
  - Cough [Unknown]
  - Diarrhoea [Recovered/Resolved]
  - Spinal compression fracture [Unknown]
  - Chest pain [Unknown]
  - Vomiting [Recovered/Resolved]
  - Incorrect route of product administration [Unknown]
  - Pulmonary embolism [Unknown]
  - Dyspnoea [Unknown]
  - Abdominal pain lower [Not Recovered/Not Resolved]
  - Pneumonia [Recovering/Resolving]
  - Tremor [Unknown]
  - Back pain [Unknown]

NARRATIVE: CASE EVENT DATE: 201805
